FAERS Safety Report 23601430 (Version 2)
Quarter: 2024Q2

REPORT INFORMATION
  Report Type: Spontaneous
  Country: US (occurrence: US)
  Receive Date: 20240306
  Receipt Date: 20240404
  Transmission Date: 20240716
  Serious: No
  Sender: FDA-Public Use
  Company Number: US-PFIZER INC-PV202400030749

PATIENT
  Age: 7 Year
  Sex: Male

DRUGS (1)
  1. OXBRYTA [Suspect]
     Active Substance: VOXELOTOR
     Dosage: 600 MG (TAKE 2 TABS BY MOUTH), 1X/DAY
     Route: 048
     Dates: start: 20231102

REACTIONS (2)
  - Dysphagia [Unknown]
  - Intentional underdose [Unknown]
